FAERS Safety Report 6119790-5 (Version None)
Quarter: 2009Q1

REPORT INFORMATION
  Report Type: 
  Country: None (occurrence: None)
  Receive Date: 20090316
  Receipt Date: 20090306
  Transmission Date: 20090719
  Serious: Yes (Hospitalization)
  Sender: FDA-Public Use
  Company Number: US-PFIZER INC-2009179586

PATIENT
  Sex: Female
  Weight: 51.5 kg

DRUGS (5)
  1. IRINOTECAN HCL [Suspect]
     Indication: GASTRIC CANCER
     Dosage: 100 MG, EVERY  2 WEEKS
     Route: 042
     Dates: start: 20090218
  2. SUTENT [Suspect]
     Indication: GASTRIC CANCER
     Dosage: 25 MG, 1X/DAY FOR 14 DAYS
     Route: 048
     Dates: start: 20090218
  3. CALCIUM FOLINATE [Suspect]
     Indication: GASTRIC CANCER
     Dosage: 400 MG, EVERY 2 WEEKS
     Route: 042
     Dates: start: 20090210
  4. FLUOROURACIL [Suspect]
     Indication: GASTRIC CANCER
     Dosage: 400 MG, EVERY 2 WEEKS
     Route: 040
     Dates: start: 20090218
  5. FLUOROURACIL [Suspect]
     Dosage: 2400 MG, EVERY 2 WEEKS
     Route: 041
     Dates: start: 20090218, end: 20090304

REACTIONS (1)
  - DYSPHAGIA [None]
